FAERS Safety Report 19416010 (Version 3)
Quarter: 2021Q2

REPORT INFORMATION
  Report Type: Spontaneous
  Country: US (occurrence: US)
  Receive Date: 20210615
  Receipt Date: 20210622
  Transmission Date: 20210717
  Serious: No
  Sender: FDA-Public Use
  Company Number: US-TEVA-2021-US-1921865

PATIENT
  Age: 34 Year
  Sex: Male
  Weight: 77.11 kg

DRUGS (1)
  1. ADDERALL [Suspect]
     Active Substance: AMPHETAMINE ASPARTATE\AMPHETAMINE SULFATE\DEXTROAMPHETAMINE SACCHARATE\DEXTROAMPHETAMINE SULFATE
     Indication: ATTENTION DEFICIT HYPERACTIVITY DISORDER
     Dosage: 40 MILLIGRAM DAILY;
     Route: 065
     Dates: start: 2018

REACTIONS (2)
  - Drug ineffective [Unknown]
  - Product availability issue [Unknown]

NARRATIVE: CASE EVENT DATE: 2021
